FAERS Safety Report 13004293 (Version 2)
Quarter: 2016Q4

REPORT INFORMATION
  Report Type: Report from Study
  Country: US (occurrence: US)
  Receive Date: 20161206
  Receipt Date: 20161227
  Transmission Date: 20170207
  Serious: Yes (Other)
  Sender: FDA-Public Use
  Company Number: US-AMGEN-USASL2016170493

PATIENT
  Age: 61 Year
  Sex: Female

DRUGS (1)
  1. ENBREL [Suspect]
     Active Substance: ETANERCEPT
     Indication: RHEUMATOID ARTHRITIS
     Dosage: UNK UNK, QWK
     Route: 065

REACTIONS (10)
  - Joint stiffness [Not Recovered/Not Resolved]
  - Peripheral swelling [Unknown]
  - Abasia [Unknown]
  - Musculoskeletal stiffness [Unknown]
  - Chills [Unknown]
  - Cough [Unknown]
  - Malaise [Unknown]
  - Joint swelling [Unknown]
  - Pyrexia [Unknown]
  - Arthralgia [Not Recovered/Not Resolved]
